FAERS Safety Report 15605110 (Version 2)
Quarter: 2019Q1

REPORT INFORMATION
  Report Type: Spontaneous
  Country: PT (occurrence: PT)
  Receive Date: 20181112
  Receipt Date: 20190102
  Transmission Date: 20190417
  Serious: Yes (Other)
  Sender: FDA-Public Use
  Company Number: PT-PFIZER INC-2018437661

PATIENT
  Age: 43 Year
  Sex: Male

DRUGS (2)
  1. FASIGYN [Suspect]
     Active Substance: TINIDAZOLE
     Indication: INFECTION
     Dosage: 500 MG, (2 TO 3 X/WEEK)
     Route: 048
  2. ZITHROMAX [Suspect]
     Active Substance: AZITHROMYCIN DIHYDRATE
     Indication: INFECTION
     Dosage: 250 MG, 1X/DAY
     Route: 048

REACTIONS (2)
  - Metal poisoning [Unknown]
  - Blood heavy metal abnormal [Unknown]
